FAERS Safety Report 10744161 (Version 2)
Quarter: 2015Q1

REPORT INFORMATION
  Report Type: Spontaneous
  Country: US (occurrence: None)
  Receive Date: 20150126
  Receipt Date: 20150209
  Transmission Date: 20150721
  Serious: Yes (Hospitalization)
  Sender: FDA-Public Use
  Company Number: AMAG201500002

PATIENT
  Age: 60 Year
  Sex: Female
  Weight: 49.4 kg

DRUGS (9)
  1. CITALOPRAM  (CITALOPRAM HYDROCHLORIDE) [Concomitant]
  2. MIRALAX (MACROGOL) [Concomitant]
  3. VENTOLIN [Concomitant]
     Active Substance: ALBUTEROL SULFATE
  4. DILAUDID [Concomitant]
     Active Substance: HYDROMORPHONE HYDROCHLORIDE
  5. FENTANYL. [Concomitant]
     Active Substance: FENTANYL
  6. ENSURE (ASCORBIC ACID, BIOTIN, CALCIUM CARBONATE, CALCIUM PANTOTHENATE, CARBOHYDRATES NOS, COPPER SULFATE, CYANOCOBALAMIN, ERGOCALCIFEROL, FATS NOS,  FERROUS SULFATE, FOLIC ACID, LINOLEIC ACID, MAGNESIUM CHLORIDE ANHYDROUS, MANGANASE CHLORIDE, NICOTINAMIDE, PHYTOMENADIONE, POTASSIUM CHLORIDE, POTAQSSIUM CITRATE, POTASSIUM IODIDE, PROTEIN, PYRIDOXINE HYDROCHLORIDE, RETINOL PALMITATE, RIBOFLAVIN, SODIUM POLYMETAPHOSPHATE, THIAMINE HYDROCHLORIDE, TOCOPHERYL ACETATE,  ZINC SULFATE) [Concomitant]
  7. FERAHEME [Suspect]
     Active Substance: FERUMOXYTOL NON-STOICHIOMETRIC MAGNETITE
     Indication: IRON DEFICIENCY ANAEMIA
     Dates: start: 20150107, end: 20150107
  8. ALBUTEROL W/IPRATROPIUM [Concomitant]
     Active Substance: ALBUTEROL\IPRATROPIUM
  9. PERCOCET (OXYCODONE HYDROCHLORIDE, PARACETAMOL) [Concomitant]

REACTIONS (7)
  - Dyspnoea [None]
  - Unresponsive to stimuli [None]
  - Haematemesis [None]
  - Cardio-respiratory arrest [None]
  - Anaphylactic reaction [None]
  - Chest discomfort [None]
  - Pulse absent [None]

NARRATIVE: CASE EVENT DATE: 20150107
